FAERS Safety Report 9596588 (Version 2)
Quarter: 2013Q4

REPORT INFORMATION
  Report Type: Spontaneous
  Country: DE (occurrence: DE)
  Receive Date: 20131004
  Receipt Date: 20131004
  Transmission Date: 20140711
  Serious: Yes (Other)
  Sender: FDA-Public Use
  Company Number: DE-UCBSA-097937

PATIENT
  Sex: Female

DRUGS (3)
  1. NEUPRO [Suspect]
     Dosage: 8 MG PATCHES
     Dates: start: 20130703
  2. NEUPRO [Suspect]
     Dosage: 2 X 4 MG PATCHES/DAY
  3. NEUPRO [Suspect]
     Dosage: TITRATING DOSE FROM 2 MG UPTO 8 MG

REACTIONS (5)
  - Application site hypersensitivity [Recovered/Resolved]
  - Application site pruritus [Recovered/Resolved]
  - Application site pain [Recovered/Resolved]
  - Application site irritation [Unknown]
  - Application site erythema [Unknown]
